FAERS Safety Report 26113521 (Version 1)
Quarter: 2025Q4

REPORT INFORMATION
  Report Type: Report from Study
  Country: CA (occurrence: CA)
  Receive Date: 20251202
  Receipt Date: 20251202
  Transmission Date: 20260118
  Serious: Yes (Hospitalization)
  Sender: NOVARTIS
  Company Number: CA-002147023-NVSC2025CA156312

PATIENT
  Age: 89 Year
  Sex: Female

DRUGS (1)
  1. LEQVIO [Suspect]
     Active Substance: INCLISIRAN SODIUM
     Indication: Arteriosclerosis
     Dosage: 284 MG, OTHER, BASELINE, 3 MONTH THEN 6 MONTH THEREAFTER
     Route: 058
     Dates: start: 20231212

REACTIONS (4)
  - Fall [Unknown]
  - Concussion [Unknown]
  - Loss of consciousness [Unknown]
  - Headache [Unknown]

NARRATIVE: CASE EVENT DATE: 20250901
